FAERS Safety Report 7120656-2 (Version None)
Quarter: 2010Q4

REPORT INFORMATION
  Report Type: 
  Country: None (occurrence: None)
  Receive Date: 20101124
  Receipt Date: 20100920
  Transmission Date: 20110411
  Serious: Yes (Hospitalization, Other)
  Sender: FDA-Public Use
  Company Number: US-BAYER-200942874NA

PATIENT
  Age: 33 Year
  Sex: Female
  Weight: 61 kg

DRUGS (7)
  1. YASMIN [Suspect]
     Indication: PRODUCT USED FOR UNKNOWN INDICATION
     Route: 048
     Dates: start: 20020101, end: 20020101
  2. YAZ [Suspect]
     Indication: PRODUCT USED FOR UNKNOWN INDICATION
     Route: 048
     Dates: start: 20020101, end: 20020101
  3. EMETROL [Concomitant]
  4. PEPCID [Concomitant]
  5. ALKA SELTZER [Concomitant]
  6. NOVUM ORTHO [Concomitant]
  7. HYDROXY CUT [Concomitant]

REACTIONS (6)
  - ABDOMINAL PAIN UPPER [None]
  - CHOLECYSTITIS ACUTE [None]
  - CHOLELITHIASIS [None]
  - NAUSEA [None]
  - THYROID DISORDER [None]
  - VOMITING [None]
